FAERS Safety Report 5894134-2 (Version None)
Quarter: 2008Q3

REPORT INFORMATION
  Report Type: 
  Country: None (occurrence: None)
  Receive Date: 20080923
  Receipt Date: 20080122
  Transmission Date: 20090109
  Serious: No
  Sender: FDA-Public Use
  Company Number: US-ASTRAZENECA-2008UW01610

PATIENT
  Age: 48 Year
  Sex: Female
  Weight: 105.2 kg

DRUGS (9)
  1. SEROQUEL XR [Suspect]
     Indication: BIPOLAR DISORDER
     Route: 048
  2. SYNTHROID [Concomitant]
  3. LEXAPRO [Concomitant]
  4. LISINOPRIL [Concomitant]
  5. TOPROL-XL [Concomitant]
  6. HYDROCHLOROTHIAZIDE [Concomitant]
  7. LIPITOR [Concomitant]
  8. NEXIUM [Concomitant]
  9. ALLEGRA [Concomitant]

REACTIONS (4)
  - DIZZINESS [None]
  - MIOSIS [None]
  - ORTHOSTATIC HYPOTENSION [None]
  - SOMNOLENCE [None]
